FAERS Safety Report 8385959-2 (Version None)
Quarter: 2012Q2

REPORT INFORMATION
  Report Type: 
  Country: None (occurrence: None)
  Receive Date: 20120525
  Receipt Date: 20120516
  Transmission Date: 20120825
  Serious: Yes (Hospitalization, Other)
  Sender: FDA-Public Use
  Company Number: CA-JNJFOC-20120514176

PATIENT
  Sex: Male
  Weight: 81.5 kg

DRUGS (4)
  1. RABEPRAZOLE SODIUM [Concomitant]
     Route: 065
  2. REMICADE [Suspect]
     Indication: RHEUMATOID ARTHRITIS
     Route: 042
     Dates: start: 20100414
  3. FOLIC ACID [Concomitant]
     Route: 065
  4. FOSAMAX [Concomitant]
     Route: 065

REACTIONS (1)
  - BLOOD URINE PRESENT [None]
